FAERS Safety Report 19951286 (Version 1)
Quarter: 2021Q4

REPORT INFORMATION
  Report Type: Spontaneous
  Country: CN (occurrence: CN)
  Receive Date: 20211013
  Receipt Date: 20211013
  Transmission Date: 20220304
  Serious: Yes (Other)
  Sender: FDA-Public Use
  Company Number: CN-PFIZER INC-202101303247

PATIENT
  Age: 85 Year
  Sex: Female

DRUGS (2)
  1. ATORVASTATIN CALCIUM [Suspect]
     Active Substance: ATORVASTATIN CALCIUM
     Indication: Therapeutic procedure
     Dosage: 20 MG, 1X/DAY
  2. PRAVASTATIN SODIUM [Suspect]
     Active Substance: PRAVASTATIN SODIUM
     Indication: Therapeutic procedure
     Dosage: 10 MG, 1X/DAY

REACTIONS (3)
  - Hepatic function abnormal [Unknown]
  - Condition aggravated [Unknown]
  - Pneumonia [Unknown]

NARRATIVE: CASE EVENT DATE: 20210514
